FAERS Safety Report 24614950 (Version 2)
Quarter: 2024Q4

REPORT INFORMATION
  Report Type: Spontaneous
  Country: ZA (occurrence: ZA)
  Receive Date: 20241113
  Receipt Date: 20241218
  Transmission Date: 20250115
  Serious: No
  Sender: MYLAN
  Company Number: ZA-MYLANLABS-2024M1101912

PATIENT
  Sex: Female

DRUGS (1)
  1. EPIPEN [Suspect]
     Active Substance: EPINEPHRINE
     Indication: Multiple allergies
     Dosage: UNK
     Route: 065

REACTIONS (2)
  - Device failure [Unknown]
  - Drug dose omission by device [Unknown]
